FAERS Safety Report 13665512 (Version 1)
Quarter: 2017Q2

REPORT INFORMATION
  Report Type: Spontaneous
  Country: GB (occurrence: GB)
  Receive Date: 20170619
  Receipt Date: 20170619
  Transmission Date: 20170830
  Serious: Yes (Other)
  Sender: FDA-Public Use
  Company Number: GB-MYLANLABS-2017M1036146

PATIENT

DRUGS (8)
  1. ATORVASTATIN [Concomitant]
     Active Substance: ATORVASTATIN
     Dates: start: 20160225
  2. HYDROXYCHLOROQUINE SULFATE. [Concomitant]
     Active Substance: HYDROXYCHLOROQUINE SULFATE
     Dates: start: 20170426
  3. OMEPRAZOLE. [Concomitant]
     Active Substance: OMEPRAZOLE
     Dates: start: 20170222
  4. ETORICOXIB [Concomitant]
     Active Substance: ETORICOXIB
     Dates: start: 20170427
  5. PROCHLORPERAZINE. [Concomitant]
     Active Substance: PROCHLORPERAZINE
     Dates: start: 20170512, end: 20170519
  6. IBUPROFEN. [Concomitant]
     Active Substance: IBUPROFEN
     Dosage: AFTER FOOD
     Dates: start: 20170222, end: 20170427
  7. INDAPAMIDE. [Suspect]
     Active Substance: INDAPAMIDE
     Dates: start: 20170427
  8. BISOPROLOL [Concomitant]
     Active Substance: BISOPROLOL
     Dates: start: 20160225

REACTIONS (2)
  - Hyponatraemia [Recovering/Resolving]
  - Seizure [Unknown]

NARRATIVE: CASE EVENT DATE: 20170602
